FAERS Safety Report 10460147 (Version 1)
Quarter: 2014Q3

REPORT INFORMATION
  Report Type: Other
  Country: US (occurrence: US)
  Receive Date: 20140917
  Receipt Date: 20140917
  Transmission Date: 20150326
  Serious: Yes (Other)
  Sender: FDA-Public Use
  Company Number: US-ENDO PHARMACEUTICALS INC-LISI20140053

PATIENT
  Age: 2 Year

DRUGS (1)
  1. LISINOPRIL TABLETS [Suspect]
     Active Substance: LISINOPRIL
     Indication: ACCIDENTAL EXPOSURE TO PRODUCT BY CHILD
     Dosage: N/A
     Route: 048

REACTIONS (2)
  - Accidental exposure to product by child [Unknown]
  - Bradycardia [Unknown]

NARRATIVE: CASE EVENT DATE: 201311
